FAERS Safety Report 4641162-0 (Version None)
Quarter: 2005Q1

REPORT INFORMATION
  Report Type: 
  Country: None (occurrence: None)
  Receive Date: 20050322
  Receipt Date: 20041230
  Transmission Date: 20050727
  Serious: Yes (Hospitalization)
  Sender: FDA-Public Use
  Company Number: HQWYE301531DEC04

PATIENT
  Age: 96 Year
  Sex: Female
  Weight: 53.57 kg

DRUGS (5)
  1. PROTONIX [Suspect]
     Indication: GASTROOESOPHAGEAL REFLUX DISEASE
     Dosage: 40 MG 1X PER 1 DAY, ORAL
     Route: 048
  2. METOPROLOL TARTRATE [Concomitant]
  3. NAMENDA (MEMANTINE HYDROCHLORIDE) [Concomitant]
  4. SYNTHROID [Concomitant]
  5. DIGOXIN [Concomitant]

REACTIONS (2)
  - DRUG SCREEN FALSE POSITIVE [None]
  - URINE CANNABINOIDS INCREASED [None]
